FAERS Safety Report 12172236 (Version 2)
Quarter: 2016Q1

REPORT INFORMATION
  Report Type: Spontaneous
  Country: CH (occurrence: CH)
  Receive Date: 20160311
  Receipt Date: 20160321
  Transmission Date: 20160526
  Serious: Yes (Hospitalization, Other)
  Sender: FDA-Public Use
  Company Number: CH-GILEAD-2016-0198907

PATIENT
  Age: 58 Year
  Sex: Male
  Weight: 88 kg

DRUGS (5)
  1. OMEZOL                             /00661201/ [Suspect]
     Active Substance: OMEPRAZOLE
     Indication: GASTROOESOPHAGEAL REFLUX DISEASE
     Dosage: 20 MG, UNK
     Route: 048
     Dates: start: 2012
  2. STRIBILD [Interacting]
     Active Substance: COBICISTAT\ELVITEGRAVIR\EMTRICITABINE\TENOFOVIR DISOPROXIL FUMARATE
     Indication: HIV INFECTION
     Dosage: 1 UNK
     Route: 048
     Dates: start: 20140601
  3. FERINJECT [Suspect]
     Active Substance: FERRIC CARBOXYMALTOSE
     Indication: HAEMOGLOBIN DECREASED
     Dosage: UNK
     Route: 042
     Dates: start: 20150319
  4. BUDENOFALK [Interacting]
     Active Substance: BUDESONIDE
     Indication: PROCTITIS
     Dosage: 2X3MG/DAY
     Route: 048
     Dates: start: 20150327, end: 20150415
  5. BUDENOFALK [Interacting]
     Active Substance: BUDESONIDE
     Indication: INFLAMMATORY BOWEL DISEASE

REACTIONS (5)
  - Sleep disorder [Recovered/Resolved]
  - Agitation [Recovered/Resolved]
  - Mental status changes [Recovered/Resolved]
  - Cushing^s syndrome [Unknown]
  - Drug interaction [Unknown]

NARRATIVE: CASE EVENT DATE: 20150410
